FAERS Safety Report 12601558 (Version 2)
Quarter: 2016Q4

REPORT INFORMATION
  Report Type: Report from Study
  Country: BR (occurrence: BR)
  Receive Date: 20160728
  Receipt Date: 20161014
  Transmission Date: 20170207
  Serious: Yes (Hospitalization, Other)
  Sender: FDA-Public Use
  Company Number: PHHY2016BR102079

PATIENT
  Sex: Female

DRUGS (1)
  1. ACLASTA [Suspect]
     Active Substance: ZOLEDRONIC ACID
     Indication: OSTEOPOROSIS
     Dosage: 5 MG, Q12MO
     Route: 042
     Dates: start: 20121029

REACTIONS (8)
  - Lung disorder [Unknown]
  - Weight gain poor [Not Recovered/Not Resolved]
  - Weight decreased [Unknown]
  - Infection [Recovering/Resolving]
  - Dementia Alzheimer^s type [Unknown]
  - General physical health deterioration [Unknown]
  - Body mass index decreased [Unknown]
  - Urinary tract infection [Unknown]

NARRATIVE: CASE EVENT DATE: 2013
